FAERS Safety Report 15458574 (Version 2)
Quarter: 2018Q4

REPORT INFORMATION
  Report Type: Spontaneous
  Country: US (occurrence: US)
  Receive Date: 20181003
  Receipt Date: 20181022
  Transmission Date: 20190204
  Serious: Yes (Other)
  Sender: FDA-Public Use
  Company Number: US-CIPLA LTD.-2018US21460

PATIENT

DRUGS (22)
  1. SULTHIAME [Concomitant]
     Active Substance: SULTHIAME
     Indication: STATUS EPILEPTICUS
     Dosage: UNK
     Route: 065
  2. PHENOBARBITONE                     /00023201/ [Concomitant]
     Active Substance: PHENOBARBITAL
     Indication: STATUS EPILEPTICUS
     Dosage: UNK
     Route: 065
  3. PROPOFOL. [Suspect]
     Active Substance: PROPOFOL
     Indication: STATUS EPILEPTICUS
     Dosage: UNK, CONTINUOUS INFUSION
  4. OXCARBAZEPINE. [Suspect]
     Active Substance: OXCARBAZEPINE
     Indication: STATUS EPILEPTICUS
     Dosage: UNK
     Route: 065
  5. KETAMINE [Concomitant]
     Active Substance: KETAMINE
     Dosage: UNK, DOWN-TITRATED OVER TWO DAYS
     Route: 065
  6. VALPROIC ACID. [Suspect]
     Active Substance: VALPROIC ACID
     Indication: STATUS EPILEPTICUS
     Dosage: UNK
     Route: 065
  7. LACOSAMIDE. [Suspect]
     Active Substance: LACOSAMIDE
     Indication: STATUS EPILEPTICUS
     Dosage: UNK
     Route: 065
  8. KETAMINE [Concomitant]
     Active Substance: KETAMINE
     Indication: STATUS EPILEPTICUS
     Dosage: 3 MG/KG, UNK, BOLUS, ADJUNCT THERAPY
     Route: 040
  9. KETAMINE [Concomitant]
     Active Substance: KETAMINE
     Dosage: 0.5 MG/KG, EVERY HOUR (GOAL OF UP-TITRATING BY 0.5 MG/KG/HOUR)
  10. KETAMINE [Concomitant]
     Active Substance: KETAMINE
     Dosage: 1.8 MG/KGHOUR, UP-TITRATED BY 1.8 MG/KG/HOUR EVERY FIVE MINUTES UNTIL BURST SUPPRESSION
     Route: 065
  11. LEVETIRACETAM. [Suspect]
     Active Substance: LEVETIRACETAM
     Indication: STATUS EPILEPTICUS
     Dosage: UNK
     Route: 065
  12. MIDAZOLAM [Suspect]
     Active Substance: MIDAZOLAM HYDROCHLORIDE
     Indication: STATUS EPILEPTICUS
     Dosage: UNK, CONTINUOUS INFUSIONS
  13. KETAMINE [Concomitant]
     Active Substance: KETAMINE
     Dosage: 3 TO 4 MG/KG/HOUR
     Route: 065
  14. TOPIRAMATE. [Suspect]
     Active Substance: TOPIRAMATE
     Indication: STATUS EPILEPTICUS
     Dosage: UNK
     Route: 065
  15. GABAPENTIN. [Suspect]
     Active Substance: GABAPENTIN
     Indication: STATUS EPILEPTICUS
     Dosage: UNK
     Route: 065
  16. PHENYTOIN. [Suspect]
     Active Substance: PHENYTOIN
     Indication: STATUS EPILEPTICUS
     Dosage: UNK
     Route: 065
  17. CLONAZEPAM. [Concomitant]
     Active Substance: CLONAZEPAM
     Indication: STATUS EPILEPTICUS
     Dosage: UNK
     Route: 065
  18. KETAMINE [Concomitant]
     Active Substance: KETAMINE
     Dosage: 1.5 MG/KG/ HOUR, MAINTENANCE INFUSION
  19. KETAMINE [Concomitant]
     Active Substance: KETAMINE
     Dosage: 4 MG/KG, EVERY HOUR, UP-TITRATION, INFUSION
  20. NITRAZEPAM [Concomitant]
     Active Substance: NITRAZEPAM
     Indication: STATUS EPILEPTICUS
     Dosage: UNK
     Route: 065
  21. CLOBAZAM. [Suspect]
     Active Substance: CLOBAZAM
     Indication: STATUS EPILEPTICUS
     Dosage: UNK
     Route: 065
  22. CARBAMAZEPINE. [Suspect]
     Active Substance: CARBAMAZEPINE
     Indication: STATUS EPILEPTICUS
     Dosage: UNK
     Route: 065

REACTIONS (3)
  - Renal tubular acidosis [Unknown]
  - Drug ineffective [Unknown]
  - Therapy non-responder [Unknown]
